FAERS Safety Report 17000170 (Version 1)
Quarter: 2019Q4

REPORT INFORMATION
  Report Type: Spontaneous
  Country: US (occurrence: US)
  Receive Date: 20190925
  Receipt Date: 20190925
  Transmission Date: 20200122
  Serious: No
  Sender: FDA-Public Use
  Company Number: None

PATIENT

DRUGS (1)
  1. DIAZEPAM. [Suspect]
     Active Substance: DIAZEPAM

REACTIONS (4)
  - Product dispensing error [None]
  - Incorrect dose administered [None]
  - Educational problem [None]
  - Hypersomnia [None]

NARRATIVE: CASE EVENT DATE: 2019
